FAERS Safety Report 17832041 (Version 1)
Quarter: 2020Q2

REPORT INFORMATION
  Report Type: Spontaneous
  Country: US (occurrence: US)
  Receive Date: 20200528
  Receipt Date: 20200528
  Transmission Date: 20200714
  Serious: No
  Sender: FDA-Public Use
  Company Number: US-ROCHE-2514440

PATIENT
  Age: 29 Year
  Sex: Female

DRUGS (5)
  1. DEPO-MEDROL [Concomitant]
     Active Substance: METHYLPREDNISOLONE ACETATE
     Indication: PREMEDICATION
  2. GABAPENIN [Concomitant]
     Active Substance: GABAPENTIN
     Indication: NEURALGIA
  3. TYLENOL [Concomitant]
     Active Substance: ACETAMINOPHEN
     Indication: PREMEDICATION
  4. MODAFINIL. [Concomitant]
     Active Substance: MODAFINIL
     Dosage: MEMORY ISSUES/FOGGINESS
     Route: 065
  5. OCREVUS [Suspect]
     Active Substance: OCRELIZUMAB
     Indication: MULTIPLE SCLEROSIS
     Dosage: AFTER INITIAL 2 INFUSIONS, THEN ONCE Q 6 MONTHS ;ONGOING: UNKNOWN
     Route: 042
     Dates: start: 20191231

REACTIONS (2)
  - Flushing [Recovered/Resolved]
  - Fatigue [Recovered/Resolved]

NARRATIVE: CASE EVENT DATE: 20191231
